FAERS Safety Report 4600640-0 (Version None)
Quarter: 2005Q1

REPORT INFORMATION
  Report Type: 
  Country: None (occurrence: None)
  Receive Date: 20050127
  Receipt Date: 20041118
  Transmission Date: 20050727
  Serious: No
  Sender: FDA-Public Use
  Company Number: USA041184100

PATIENT
  Age: 8 Year
  Sex: Male
  Weight: 33 kg

DRUGS (4)
  1. STRATTERA [Suspect]
     Dosage: 60 MG DAY
     Dates: start: 20030701
  2. CLARITIN [Concomitant]
  3. NASONEX [Concomitant]
  4. EPIPEN (EPINEPHRINE) [Concomitant]

REACTIONS (4)
  - FATIGUE [None]
  - IRRITABILITY [None]
  - PRESCRIBED OVERDOSE [None]
  - SOMNOLENCE [None]
